FAERS Safety Report 7099316-2 (Version None)
Quarter: 2010Q4

REPORT INFORMATION
  Report Type: 
  Country: None (occurrence: None)
  Receive Date: 20101112
  Receipt Date: 20080627
  Transmission Date: 20110411
  Serious: No
  Sender: FDA-Public Use
  Company Number: US-KINGPHARMUSA00001-K200800751

PATIENT
  Sex: Female
  Weight: 53.515 kg

DRUGS (5)
  1. AVINZA [Suspect]
     Indication: PAIN
     Dosage: 120 MG, QD
     Route: 048
     Dates: start: 20080401, end: 20080601
  2. AVINZA [Suspect]
     Dosage: 90 MG, QD
     Route: 048
     Dates: start: 20080601
  3. VITAMINS [Concomitant]
  4. HORMONES NOS [Concomitant]
  5. MORPHINE [Concomitant]
     Indication: PAIN
     Dosage: 15 MG, BID
     Route: 048

REACTIONS (1)
  - BONE PAIN [None]
